FAERS Safety Report 11259494 (Version 2)
Quarter: 2015Q3

REPORT INFORMATION
  Report Type: Spontaneous
  Country: ES (occurrence: ES)
  Receive Date: 20150710
  Receipt Date: 20150803
  Transmission Date: 20151125
  Serious: Yes (Hospitalization, Other)
  Sender: FDA-Public Use
  Company Number: ES-PFIZER INC-2015228243

PATIENT
  Age: 39 Year
  Sex: Male

DRUGS (3)
  1. RISPERIDONE. [Interacting]
     Active Substance: RISPERIDONE
     Dosage: 3 MG, 1X/DAY
     Route: 048
  2. TRANKIMAZIN RETARD [Suspect]
     Active Substance: ALPRAZOLAM
     Dosage: 5 MG, 1X/DAY
     Route: 048
  3. INCIVO [Interacting]
     Active Substance: TELAPREVIR
     Indication: HIV INFECTION
     Dosage: 225 MG, 1X/DAY
     Route: 048
     Dates: start: 20140613, end: 20140905

REACTIONS (6)
  - Hypokinesia [Unknown]
  - Extrapyramidal disorder [Unknown]
  - Diet refusal [Unknown]
  - Disorientation [Unknown]
  - Confusional state [Recovered/Resolved]
  - Drug interaction [Unknown]

NARRATIVE: CASE EVENT DATE: 201409
